FAERS Safety Report 15494062 (Version 1)
Quarter: 2018Q4

REPORT INFORMATION
  Report Type: Spontaneous
  Country: None (occurrence: FR)
  Receive Date: 20181012
  Receipt Date: 20181012
  Transmission Date: 20190205
  Serious: Yes (Death)
  Sender: FDA-Public Use
  Company Number: FR-PROVELL PHARMACEUTICALS-2055977

PATIENT
  Age: 36 Year
  Sex: Male
  Weight: 70 kg

DRUGS (5)
  1. PROPRANOLOL [Concomitant]
     Active Substance: PROPRANOLOL HYDROCHLORIDE
     Route: 048
  2. ALPRAZOLAM. [Concomitant]
     Active Substance: ALPRAZOLAM
     Route: 048
  3. EUTHYROX [Suspect]
     Active Substance: LEVOTHYROXINE SODIUM
     Indication: HYPOTHYROIDISM
     Route: 048
     Dates: start: 20170531, end: 20180220
  4. THYROZOL [Suspect]
     Active Substance: METHIMAZOLE
  5. THYROZOL [Suspect]
     Active Substance: METHIMAZOLE
     Route: 048
     Dates: start: 201612

REACTIONS (6)
  - Completed suicide [Fatal]
  - Anxiety [Fatal]
  - Vertigo [Fatal]
  - Hyperthyroidism [Fatal]
  - Accommodation disorder [Fatal]
  - Tachycardia [Fatal]

NARRATIVE: CASE EVENT DATE: 20180228
